FAERS Safety Report 4451248-1 (Version None)
Quarter: 2004Q3

REPORT INFORMATION
  Report Type: 
  Country: None (occurrence: None)
  Receive Date: 20040915
  Receipt Date: 20040915
  Transmission Date: 20050211
  Serious: Yes (Life-Threatening, Hospitalization)
  Sender: FDA-Public Use
  Company Number: None

PATIENT
  Age: 63 Year
  Sex: Male

DRUGS (3)
  1. TAXOTERE [Suspect]
     Indication: GASTRIC CANCER
     Dosage: 25.5 MG./M2 IV
     Route: 042
     Dates: start: 20040528, end: 20040723
  2. CISPLATIN [Suspect]
     Indication: GASTRIC CANCER
     Dosage: 25 MG/M2 IV
     Route: 042
     Dates: start: 20040528, end: 20040723
  3. CPT-11 (DAY 1, 8 OF 21 DAY CYCLE [Suspect]
     Indication: GASTRIC CANCER
     Dosage: 37.5 MG/M2
     Dates: start: 20040528, end: 20040723

REACTIONS (4)
  - DEEP VEIN THROMBOSIS [None]
  - DISEASE PROGRESSION [None]
  - PULMONARY EMBOLISM [None]
  - SMALL INTESTINAL OBSTRUCTION [None]
